FAERS Safety Report 7037500-4 (Version None)
Quarter: 2010Q4

REPORT INFORMATION
  Report Type: 
  Country: None (occurrence: None)
  Receive Date: 20101011
  Receipt Date: 20101001
  Transmission Date: 20110411
  Serious: Yes (Hospitalization)
  Sender: FDA-Public Use
  Company Number: B0557746A

PATIENT
  Age: 9 Year
  Sex: Male

DRUGS (10)
  1. LAMOTRIGINE [Suspect]
     Dosage: 2MGK PER DAY
     Route: 065
  2. VALPROIC ACID [Suspect]
     Dosage: 26MGK PER DAY
     Route: 065
  3. CLOBAZAM [Suspect]
     Dosage: 1.5MGK PER DAY
     Route: 065
  4. ETHOSUXIMIDE [Suspect]
     Dosage: 33MGK PER DAY
     Route: 065
  5. VALPROATE SODIUM [Suspect]
     Dosage: 33MGK PER DAY
     Route: 065
  6. LEVETIRACETAM [Suspect]
     Indication: EPILEPSY
     Dosage: 2MGK PER DAY
     Route: 065
  7. EPINEPHRINE [Concomitant]
     Indication: KLEBSIELLA INFECTION
     Route: 065
  8. CEFUROXIME [Concomitant]
     Indication: KLEBSIELLA INFECTION
     Route: 065
  9. MEROPENEM [Concomitant]
     Indication: KLEBSIELLA INFECTION
     Route: 065
  10. PREDNISOLONE [Concomitant]
     Route: 065

REACTIONS (24)
  - ANGIOEDEMA [None]
  - BLISTER [None]
  - BRADYCARDIA [None]
  - BRAIN STEM SYNDROME [None]
  - COMA [None]
  - CONVULSION [None]
  - DEPRESSED LEVEL OF CONSCIOUSNESS [None]
  - DRUG INEFFECTIVE [None]
  - DRUG INTERACTION [None]
  - DRUG TOXICITY [None]
  - ERYTHEMA [None]
  - HEPATIC FUNCTION ABNORMAL [None]
  - HYPOTENSION [None]
  - HYPOXIA [None]
  - KLEBSIELLA INFECTION [None]
  - LETHARGY [None]
  - LIVER FUNCTION TEST ABNORMAL [None]
  - LOWER RESPIRATORY TRACT INFECTION [None]
  - NECROSIS [None]
  - OCULOCEPHALOGYRIC REFLEX ABSENT [None]
  - OEDEMA [None]
  - PNEUMONIA [None]
  - STRIDOR [None]
  - SWEAT GLAND DISORDER [None]
